FAERS Safety Report 18332520 (Version 2)
Quarter: 2020Q4

REPORT INFORMATION
  Report Type: Spontaneous
  Country: CN (occurrence: CN)
  Receive Date: 20200930
  Receipt Date: 20201012
  Transmission Date: 20210113
  Serious: Yes (Death, Other)
  Sender: FDA-Public Use
  Company Number: CN-009507513-2009CHN009720

PATIENT

DRUGS (2)
  1. KEYTRUDA [Suspect]
     Active Substance: PEMBROLIZUMAB
     Indication: HEAD AND NECK CANCER
     Dosage: UNK
  2. DEXAMETHASONE. [Interacting]
     Active Substance: DEXAMETHASONE

REACTIONS (6)
  - Malignant neoplasm progression [Unknown]
  - Death [Fatal]
  - Weight decreased [Unknown]
  - Drug interaction [Unknown]
  - Pneumonitis [Unknown]
  - Weight increased [Unknown]
